FAERS Safety Report 12413299 (Version 1)
Quarter: 2016Q2

REPORT INFORMATION
  Report Type: Spontaneous
  Country: CN (occurrence: CN)
  Receive Date: 20160527
  Receipt Date: 20160527
  Transmission Date: 20160815
  Serious: Yes (Hospitalization)
  Sender: FDA-Public Use
  Company Number: CN-ASTRAZENECA-2016SE10307

PATIENT
  Age: 55 Year
  Sex: Male

DRUGS (8)
  1. BYETTA [Suspect]
     Active Substance: EXENATIDE
     Indication: DIABETES MELLITUS
     Dosage: 10 UG TWICE DAILY
     Route: 058
     Dates: start: 2016
  2. BYETTA [Suspect]
     Active Substance: EXENATIDE
     Indication: DIABETES MELLITUS
     Dosage: 5 UG TWICE DAILY
     Route: 058
     Dates: start: 20160127
  3. BYETTA [Suspect]
     Active Substance: EXENATIDE
     Indication: DIABETES MELLITUS
     Dosage: 5 UG TWICE DAILY
     Route: 058
     Dates: start: 201512, end: 20160122
  4. BYETTA [Suspect]
     Active Substance: EXENATIDE
     Indication: DIABETES MELLITUS
     Dosage: 10 UG TWICE DAILY
     Route: 058
     Dates: start: 20160123, end: 20160126
  5. METFORMIN [Concomitant]
     Active Substance: METFORMIN HYDROCHLORIDE
     Dates: start: 201512
  6. ACARBOSE. [Concomitant]
     Active Substance: ACARBOSE
     Dosage: 0.5-1 TABLET TID
     Dates: start: 201512
  7. TELMISARTAN. [Concomitant]
     Active Substance: TELMISARTAN
     Indication: HYPERTENSION
  8. INSULIN [Concomitant]
     Active Substance: INSULIN NOS
     Dosage: DECREASED FROM 80U A DAY TO OVER 20U A DAY
     Dates: start: 2011

REACTIONS (4)
  - Weight decreased [Not Recovered/Not Resolved]
  - Blood glucose fluctuation [Unknown]
  - Hyperglycaemia [Unknown]
  - Diabetic ketoacidosis [Unknown]
